FAERS Safety Report 4457038-8 (Version None)
Quarter: 2004Q3

REPORT INFORMATION
  Report Type: 
  Country: None (occurrence: None)
  Receive Date: 20040921
  Receipt Date: 20040914
  Transmission Date: 20050211
  Serious: Yes (Death)
  Sender: FDA-Public Use
  Company Number: J081-002-001707

PATIENT
  Age: 82 Year
  Sex: Male

DRUGS (6)
  1. ARICEPT [Suspect]
     Indication: DEMENTIA
     Dosage: 3 MG 1 IN 1 D ORAL
     Route: 048
     Dates: start: 20040627, end: 20010711
  2. NORVASC [Suspect]
     Indication: HYPERTENSION
     Dosage: 10 MG 2 IN 1 D ORAL
     Route: 048
     Dates: start: 20010406, end: 20011122
  3. DICLOFENAC SODIUM [Suspect]
     Indication: NASOPHARYNGITIS
     Dosage: 50 MG 2 IN 1 D ORAL
     Route: 048
     Dates: start: 20011025
  4. KUREMEZIN (SPHERICAL CARBONACEOUS ABSORBENT) [Suspect]
     Indication: RENAL FAILURE CHRONIC
     Dosage: 1.8 GM 3 IN 1 D ORAL
     Route: 048
     Dates: start: 20010406, end: 20011012
  5. HARNAL (TAMSULOSIN HYDROCHLORIDE) [Suspect]
     Indication: BENIGN PROSTATIC HYPERPLASIA
     Dosage: 0.2 MG 1 IN 1 D ORAL
     Route: 048
     Dates: start: 20010406, end: 20011122
  6. ALOSENN (ALOSENN) [Suspect]
     Dosage: 1.5 GM 1 IN 1 D ORAL
     Route: 048
     Dates: start: 20010406, end: 20011122

REACTIONS (4)
  - BLOOD PRESSURE INCREASED [None]
  - GASTROINTESTINAL HAEMORRHAGE [None]
  - NASOPHARYNGITIS [None]
  - RENAL FAILURE [None]
